FAERS Safety Report 12170841 (Version 1)
Quarter: 2016Q1

REPORT INFORMATION
  Report Type: Spontaneous
  Country: US (occurrence: None)
  Receive Date: 20160310
  Receipt Date: 20160310
  Transmission Date: 20160526
  Serious: Yes (Life-Threatening)
  Sender: FDA-Public Use
  Company Number: None

PATIENT
  Age: 17 Year
  Sex: Female
  Weight: 51.71 kg

DRUGS (11)
  1. IBURPROFEN [Concomitant]
  2. TYLENOL [Concomitant]
     Active Substance: ACETAMINOPHEN
  3. FLONASE [Concomitant]
     Active Substance: FLUTICASONE PROPIONATE
  4. TRAZODONE [Concomitant]
     Active Substance: TRAZODONE HYDROCHLORIDE
  5. EPIPEN [Concomitant]
     Active Substance: EPINEPHRINE
  6. CARBAMAZEPINE 200 MG TARO PHARM USA [Suspect]
     Active Substance: CARBAMAZEPINE
     Indication: POST-TRAUMATIC STRESS DISORDER
     Dosage: 1 TABLET TWIVE DAILY TAKEN BY MOUTH
     Route: 048
     Dates: start: 20160217, end: 20160305
  7. CARBAMAZEPINE 200 MG TARO PHARM USA [Suspect]
     Active Substance: CARBAMAZEPINE
     Indication: BIPOLAR DISORDER
     Dosage: 1 TABLET TWIVE DAILY TAKEN BY MOUTH
     Route: 048
     Dates: start: 20160217, end: 20160305
  8. BENADRYL [Concomitant]
     Active Substance: DIPHENHYDRAMINE HYDROCHLORIDE
  9. CARBAMAZEPINE 200 MG TARO PHARM USA [Suspect]
     Active Substance: CARBAMAZEPINE
     Indication: SUICIDAL IDEATION
     Dosage: 1 TABLET TWIVE DAILY TAKEN BY MOUTH
     Route: 048
     Dates: start: 20160217, end: 20160305
  10. RISPERDAL [Concomitant]
     Active Substance: RISPERIDONE
  11. ALBUTEROL. [Concomitant]
     Active Substance: ALBUTEROL

REACTIONS (6)
  - Pancytopenia [None]
  - Pyrexia [None]
  - Neck pain [None]
  - Rash erythematous [None]
  - Abdominal pain [None]
  - Lymphadenopathy [None]

NARRATIVE: CASE EVENT DATE: 20160303
